FAERS Safety Report 14991818 (Version 2)
Quarter: 2018Q3

REPORT INFORMATION
  Report Type: Report from Study
  Country: BR (occurrence: BR)
  Receive Date: 20180608
  Receipt Date: 20180801
  Transmission Date: 20181010
  Serious: Yes (Other)
  Sender: FDA-Public Use
  Company Number: PHHY2018BR014936

PATIENT
  Age: 53 Year
  Sex: Male
  Weight: 100 kg

DRUGS (6)
  1. METHOTREXATE. [Suspect]
     Active Substance: METHOTREXATE
     Indication: PRODUCT USED FOR UNKNOWN INDICATION
     Route: 065
  2. COSENTYX [Suspect]
     Active Substance: SECUKINUMAB
     Indication: PSORIATIC ARTHROPATHY
     Dosage: 150 MG, UNK
     Route: 058
  3. COSENTYX [Suspect]
     Active Substance: SECUKINUMAB
     Dosage: 300 MG, QMO
     Route: 058
     Dates: start: 20180718
  4. COSENTYX [Suspect]
     Active Substance: SECUKINUMAB
     Indication: RHEUMATOID ARTHRITIS
     Dosage: UNK
     Route: 058
     Dates: start: 20180102
  5. COSENTYX [Suspect]
     Active Substance: SECUKINUMAB
     Dosage: UNK
     Route: 058
     Dates: start: 20180522
  6. COSENTYX [Suspect]
     Active Substance: SECUKINUMAB
     Indication: PSORIASIS
     Dosage: 300 MG, QMO
     Route: 058
     Dates: start: 20171205

REACTIONS (24)
  - Weight increased [Unknown]
  - Rash [Unknown]
  - Psoriasis [Recovering/Resolving]
  - Mass [Recovering/Resolving]
  - Pruritus [Recovering/Resolving]
  - Blister [Unknown]
  - Scratch [Unknown]
  - Wound secretion [Unknown]
  - Therapy non-responder [Unknown]
  - Weight decreased [Recovering/Resolving]
  - Feeling hot [Unknown]
  - Pain [Recovering/Resolving]
  - Memory impairment [Unknown]
  - Emotional distress [Unknown]
  - Blood glucose increased [Recovering/Resolving]
  - Onychomadesis [Unknown]
  - Epistaxis [Recovered/Resolved]
  - Stress [Unknown]
  - Burning sensation [Unknown]
  - Erythema [Unknown]
  - Product use in unapproved indication [Unknown]
  - Wound [Recovering/Resolving]
  - Urticaria [Unknown]
  - Drug ineffective [Unknown]

NARRATIVE: CASE EVENT DATE: 201805
